FAERS Safety Report 19977810 (Version 1)
Quarter: 2021Q4

REPORT INFORMATION
  Report Type: Spontaneous
  Country: US (occurrence: US)
  Receive Date: 20211020
  Receipt Date: 20211020
  Transmission Date: 20220303
  Serious: Yes (Hospitalization)
  Sender: FDA-Public Use
  Company Number: None

PATIENT
  Age: 72 Year
  Sex: Female

DRUGS (7)
  1. PROLIA [Suspect]
     Active Substance: DENOSUMAB
     Indication: Senile osteoporosis
     Dosage: ?          OTHER FREQUENCY:EVERY 6 MONTHS;
     Dates: start: 20150420
  2. ASPRIN LOW DOSE [Concomitant]
  3. CALCIUM\VITAMIN D [Concomitant]
     Active Substance: CALCIUM\VITAMIN D
  4. FISH OIL [Concomitant]
     Active Substance: FISH OIL
  5. GLUCOSAMINE [Concomitant]
     Active Substance: GLUCOSAMINE
  6. LOVASTATIN [Concomitant]
     Active Substance: LOVASTATIN
  7. MAGNESIUM [Concomitant]
     Active Substance: MAGNESIUM

REACTIONS (1)
  - Rotator cuff repair [None]

NARRATIVE: CASE EVENT DATE: 20210726
